FAERS Safety Report 4266742-6 (Version None)
Quarter: 2004Q1

REPORT INFORMATION
  Report Type: 
  Country: None (occurrence: None)
  Receive Date: 20040108
  Receipt Date: 20040102
  Transmission Date: 20041129
  Serious: Yes (Hospitalization)
  Sender: FDA-Public Use
  Company Number: FR-GLAXOSMITHKLINE-B0318803A

PATIENT
  Age: 26 Year
  Sex: Female

DRUGS (3)
  1. CLAMOXYL [Suspect]
     Indication: ACUTE TONSILLITIS
     Route: 048
     Dates: start: 20030807, end: 20030814
  2. HEXASPRAY [Suspect]
     Indication: ACUTE TONSILLITIS
     Route: 002
     Dates: start: 20030807, end: 20030814
  3. TEGRETOL [Suspect]
     Indication: STATUS EPILEPTICUS
     Dosage: 1UNIT TWICE PER DAY
     Route: 048
     Dates: start: 20030728, end: 20030819

REACTIONS (9)
  - ALANINE AMINOTRANSFERASE INCREASED [None]
  - ASPARTATE AMINOTRANSFERASE INCREASED [None]
  - EOSINOPHILIA [None]
  - GAMMA-GLUTAMYLTRANSFERASE INCREASED [None]
  - LIVER DISORDER [None]
  - PHARYNGEAL OEDEMA [None]
  - PHARYNGOLARYNGEAL PAIN [None]
  - PYREXIA [None]
  - RASH GENERALISED [None]
